FAERS Safety Report 12629222 (Version 2)
Quarter: 2016Q3

REPORT INFORMATION
  Report Type: Spontaneous
  Country: US (occurrence: US)
  Receive Date: 20160808
  Receipt Date: 20160823
  Transmission Date: 20161109
  Serious: Yes (Other)
  Sender: FDA-Public Use
  Company Number: US-AUROBINDO-AUR-APL-2016-10072

PATIENT
  Age: 30 Year
  Sex: Female

DRUGS (4)
  1. METHENAMINE [Concomitant]
     Active Substance: METHENAMINE
     Indication: BLADDER PAIN
     Route: 065
  2. LORATADINE. [Concomitant]
     Active Substance: LORATADINE
     Indication: HYPERSENSITIVITY
     Route: 065
  3. GUAIFENESIN. [Suspect]
     Active Substance: GUAIFENESIN
     Indication: HYPERSENSITIVITY
     Route: 065
  4. IBUPROFEN. [Concomitant]
     Active Substance: IBUPROFEN
     Indication: HYPERSENSITIVITY
     Route: 065

REACTIONS (1)
  - Nephrolithiasis [Unknown]
